FAERS Safety Report 9232703 (Version 1)
Quarter: 2013Q2

REPORT INFORMATION
  Report Type: Spontaneous
  Country: US (occurrence: None)
  Receive Date: 20130415
  Receipt Date: 20130415
  Transmission Date: 20140414
  Serious: Yes (Hospitalization)
  Sender: FDA-Public Use
  Company Number: None

PATIENT
  Sex: 0

DRUGS (1)
  1. EVAMIST [Suspect]
     Dates: start: 20130221, end: 20130303

REACTIONS (8)
  - Cough [None]
  - Bronchitis [None]
  - Cardiac flutter [None]
  - Arrhythmia [None]
  - Headache [None]
  - Chest pain [None]
  - Sluggishness [None]
  - Pain [None]
